FAERS Safety Report 11659573 (Version 6)
Quarter: 2016Q2

REPORT INFORMATION
  Report Type: Report from Study
  Country: US (occurrence: US)
  Receive Date: 20151026
  Receipt Date: 20160405
  Transmission Date: 20160815
  Serious: Yes (Hospitalization, Other)
  Sender: FDA-Public Use
  Company Number: US-MALLINCKRODT-T201504858

PATIENT
  Age: 36 Year
  Sex: Male

DRUGS (9)
  1. REPOSITORY CORTICOTROPIN INJECTION [Suspect]
     Active Substance: CORTICOTROPIN
     Indication: PROTEINURIA
     Dosage: 80 UNITS TWICE WKLY
     Route: 058
     Dates: start: 20131025
  2. RITUXAN [Concomitant]
     Active Substance: RITUXIMAB
     Indication: PROTEINURIA
     Dosage: ONE DOSE EVERY 6 MONTHS
     Route: 042
     Dates: start: 201403
  3. REPOSITORY CORTICOTROPIN INJECTION [Suspect]
     Active Substance: CORTICOTROPIN
     Indication: NEPHROTIC SYNDROME
     Dosage: 80 UNITS TWICE WKLY
     Route: 058
     Dates: start: 20131116
  4. LYRICA [Suspect]
     Active Substance: PREGABALIN
     Indication: PRODUCT USED FOR UNKNOWN INDICATION
     Dosage: UNK DOSE/FREQUENCY
     Route: 065
  5. IRON [Concomitant]
     Active Substance: IRON
     Indication: SUPPLEMENTATION THERAPY
     Dosage: ONE DOSE EVERY 6 MONTHS
     Route: 042
  6. OXYGEN. [Concomitant]
     Active Substance: OXYGEN
     Dosage: 5 LITERS 24 HRS A DAY, EVERY DAY
  7. RITUXAN [Concomitant]
     Active Substance: RITUXIMAB
     Indication: NEPHROTIC SYNDROME
  8. PROLIA [Concomitant]
     Active Substance: DENOSUMAB
     Indication: OSTEOPOROSIS
     Dosage: ONE DOSE EVERY 6 MONTHS
     Route: 042
  9. SOLU-MEDROL [Suspect]
     Active Substance: METHYLPREDNISOLONE SODIUM SUCCINATE
     Dosage: 1,000 MG

REACTIONS (16)
  - Chronic kidney disease [Not Recovered/Not Resolved]
  - Blood glucose increased [Not Recovered/Not Resolved]
  - Increased appetite [Not Recovered/Not Resolved]
  - Alopecia [Not Recovered/Not Resolved]
  - Respiratory tract infection [Not Recovered/Not Resolved]
  - Foot fracture [Recovered/Resolved]
  - Dysphonia [Not Recovered/Not Resolved]
  - Drug dose omission [Recovered/Resolved]
  - Injection site mass [Not Recovered/Not Resolved]
  - Procedural complication [Unknown]
  - Thrombosis [Recovered/Resolved]
  - Malaise [Recovered/Resolved]
  - Gastrointestinal inflammation [Recovered/Resolved]
  - Thyroid neoplasm [Recovered/Resolved]
  - Pain [Recovering/Resolving]
  - Oedema [Recovered/Resolved]

NARRATIVE: CASE EVENT DATE: 20131116
